FAERS Safety Report 9382073 (Version 3)
Quarter: 2013Q3

REPORT INFORMATION
  Report Type: Spontaneous
  Country: US (occurrence: US)
  Receive Date: 20130703
  Receipt Date: 20130924
  Transmission Date: 20140515
  Serious: Yes (Hospitalization)
  Sender: FDA-Public Use
  Company Number: US-DYAX CORP.-2013DX000125

PATIENT
  Age: 13 Year
  Sex: Female
  Weight: 59.02 kg

DRUGS (5)
  1. KALBITOR [Suspect]
     Indication: HEREDITARY ANGIOEDEMA
     Route: 058
     Dates: start: 20130627, end: 20130627
  2. KALBITOR [Suspect]
     Route: 058
     Dates: start: 20130622, end: 20130622
  3. KALBITOR [Suspect]
     Route: 058
     Dates: start: 20130521, end: 20130627
  4. ALLEGRA [Concomitant]
     Indication: HEREDITARY ANGIOEDEMA
     Route: 048
     Dates: start: 20130507
  5. ZANTAC [Concomitant]
     Indication: HEREDITARY ANGIOEDEMA
     Route: 048
     Dates: start: 20130413

REACTIONS (4)
  - Anaphylactic reaction [Recovered/Resolved]
  - Hereditary angioedema [Unknown]
  - Chest discomfort [Recovered/Resolved]
  - Off label use [Unknown]
